FAERS Safety Report 4829338-0 (Version None)
Quarter: 2005Q4

REPORT INFORMATION
  Report Type: 
  Country: None (occurrence: None)
  Receive Date: 20051116
  Receipt Date: 20051110
  Transmission Date: 20060501
  Serious: Yes (Hospitalization)
  Sender: FDA-Public Use
  Company Number: 2005UW17090

PATIENT
  Age: 75 Year
  Sex: Male

DRUGS (4)
  1. NEXIUM [Suspect]
     Indication: GASTROOESOPHAGEAL REFLUX DISEASE
     Route: 048
     Dates: start: 20031101
  2. METOPROLOL [Concomitant]
     Indication: ARRHYTHMIA
     Route: 048
  3. MORPHINE [Concomitant]
     Indication: PAIN
  4. DURAGESIC-100 [Concomitant]
     Indication: PAIN
     Route: 061

REACTIONS (3)
  - ERUCTATION [None]
  - GASTRIC CANCER [None]
  - INCREASED UPPER AIRWAY SECRETION [None]
